FAERS Safety Report 13759013 (Version 1)
Quarter: 2017Q3

REPORT INFORMATION
  Report Type: Spontaneous
  Country: US (occurrence: US)
  Receive Date: 20170717
  Receipt Date: 20170717
  Transmission Date: 20171127
  Serious: Yes (Other)
  Sender: FDA-Public Use
  Company Number: PHEH2017US021305

PATIENT

DRUGS (1)
  1. SANDOSTATIN [Suspect]
     Active Substance: OCTREOTIDE ACETATE
     Indication: CARCINOID TUMOUR OF THE STOMACH
     Route: 065

REACTIONS (6)
  - Malignant neoplasm progression [Unknown]
  - Metastases to bone [Recovered/Resolved]
  - Metastases to liver [Unknown]
  - Dyspepsia [Unknown]
  - Arthritis [Unknown]
  - Hot flush [Unknown]
